FAERS Safety Report 18543156 (Version 1)
Quarter: 2020Q4

REPORT INFORMATION
  Report Type: Spontaneous
  Country: SE (occurrence: SE)
  Receive Date: 20201124
  Receipt Date: 20201124
  Transmission Date: 20210114
  Serious: Yes (Other)
  Sender: FDA-Public Use
  Company Number: SE-PURDUE-USA-2020-0179043

PATIENT
  Age: 77 Year
  Sex: Male

DRUGS (13)
  1. LOSARTAN. [Concomitant]
     Active Substance: LOSARTAN
  2. ALVEDON [Concomitant]
     Active Substance: ACETAMINOPHEN
  3. ALFUZOSIN [Concomitant]
     Active Substance: ALFUZOSIN
  4. NORSPAN [Suspect]
     Active Substance: BUPRENORPHINE
     Indication: PAIN
     Dosage: 1 UNIT, WEEKLY (ETT PLASTER/VECKA) (5 MICROGRAM)
     Route: 062
     Dates: start: 20201007, end: 20201008
  5. OXYCONTIN [Concomitant]
     Active Substance: OXYCODONE HYDROCHLORIDE
  6. AMLODIPINE [Concomitant]
     Active Substance: AMLODIPINE BESYLATE
  7. TROMBYL [Concomitant]
     Active Substance: ASPIRIN
  8. STILNOCT [Concomitant]
     Active Substance: ZOLPIDEM TARTRATE
  9. SIMVASTATIN. [Concomitant]
     Active Substance: SIMVASTATIN
  10. ESCITALOPRAM [Concomitant]
     Active Substance: ESCITALOPRAM OXALATE
  11. LEVAXIN [Concomitant]
     Active Substance: LEVOTHYROXINE SODIUM
  12. FINASTERIDE. [Concomitant]
     Active Substance: FINASTERIDE
  13. OMEPRAZOLE. [Concomitant]
     Active Substance: OMEPRAZOLE

REACTIONS (1)
  - Radial nerve palsy [Not Recovered/Not Resolved]

NARRATIVE: CASE EVENT DATE: 20201008
